FAERS Safety Report 8678990 (Version 2)
Quarter: 2012Q4

REPORT INFORMATION
  Report Type: 
  Country: DE (occurrence: DE)
  Receive Date: 20120724
  Receipt Date: 20121023
  Transmission Date: 20130627
  Serious: Yes (Hospitalization)
  Sender: FDA-Public Use
  Company Number: DE-AMGEN-DEUSP2012045174

PATIENT
  Sex: Female

DRUGS (17)
  1. PEGFILGRASTIM [Suspect]
     Indication: B-CELL LYMPHOMA
     Dosage: 6 mg, q2wk
     Route: 058
     Dates: start: 20120429
  2. RITUXIMAB [Suspect]
     Indication: B-CELL LYMPHOMA
     Dosage: 742.5 mg, q2wk
     Route: 042
     Dates: start: 20120425
  3. CYCLOPHOSPHAMIDE [Suspect]
     Indication: B-CELL LYMPHOMA
     Dosage: 1493 mg, q2wk
     Route: 042
     Dates: start: 20120426
  4. DOXORUBICIN [Suspect]
     Indication: B-CELL LYMPHOMA
     Dosage: 100 mg, q2wk
     Route: 042
     Dates: start: 20120426
  5. VINCRISTINE [Suspect]
     Indication: B-CELL LYMPHOMA
     Dosage: 3.54 mg, q2wk
     Route: 042
     Dates: start: 20120426
  6. PREDNISOLONE [Suspect]
     Indication: B-CELL LYMPHOMA
     Dosage: 100 mg, UNK
     Route: 051
     Dates: start: 20120426, end: 20120430
  7. PANTOPRAZOL [Concomitant]
     Indication: PROPHYLAXIS AGAINST GASTROINTESTINAL ULCER
     Dosage: UNK
     Route: 051
  8. ENOXAPARIN SODIUM [Concomitant]
     Indication: ARRHYTHMIA PROPHYLAXIS
     Dosage: UNK
     Route: 058
  9. NEBIVOLOL [Concomitant]
     Indication: ATRIAL FIBRILLATION
     Dosage: 5 mg, qd
     Route: 048
     Dates: start: 20120412
  10. LEVOTHYROXINE                      /00068002/ [Concomitant]
     Indication: HYPOTHYROIDISM
     Dosage: 100 mug, qd
     Route: 048
     Dates: start: 20120412
  11. SIMVASTIN [Concomitant]
     Indication: ARTERIOSCLEROSIS CORONARY ARTERY
     Dosage: 20 mg, UNK
     Route: 048
     Dates: start: 20120412
  12. TORASEMIDE [Concomitant]
     Indication: HYPERTENSION
     Dosage: 10 mg, UNK
     Route: 048
     Dates: start: 20120412
  13. ACETYLSALICYLIC ACID [Concomitant]
     Indication: ARTERIOSCLEROSIS CORONARY ARTERY
     Dosage: 100 mg, UNK
     Route: 048
     Dates: start: 20120412
  14. TIOTROPIUM BROMIDE [Concomitant]
     Indication: CHRONIC OBSTRUCTIVE PULMONARY DISEASE
     Dosage: 18 mug, UNK
     Route: 048
     Dates: start: 20120412
  15. RAMIPRIL [Concomitant]
     Indication: HYPERTENSION
     Dosage: 5 mg, UNK
     Route: 048
     Dates: start: 20120412
  16. TRIMETHOPRIM [Concomitant]
     Indication: ANTIFUNGAL PROPHYLAXIS
     Dosage: 960 mg, 2 times/wk
     Route: 051
     Dates: start: 20120412
  17. ACICLOVIR [Concomitant]
     Indication: ANTIVIRAL PROPHYLAXIS
     Dosage: 400 mg, qid
     Route: 051
     Dates: start: 20120412

REACTIONS (2)
  - Febrile neutropenia [Not Recovered/Not Resolved]
  - Device related infection [Recovered/Resolved]
